FAERS Safety Report 5981922-7 (Version None)
Quarter: 2008Q4

REPORT INFORMATION
  Report Type: 
  Country: None (occurrence: None)
  Receive Date: 20081205
  Receipt Date: 20080222
  Transmission Date: 20090506
  Serious: No
  Sender: FDA-Public Use
  Company Number: US-AMGEN-KDL266672

PATIENT
  Sex: Female

DRUGS (3)
  1. ENBREL [Suspect]
     Indication: RHEUMATOID ARTHRITIS
     Route: 058
     Dates: start: 20051201
  2. HYDROXYCHLOROQUINE SULFATE [Concomitant]
     Dates: start: 19700101
  3. SULFASALAZINE [Concomitant]
     Dates: start: 19960101

REACTIONS (2)
  - HAND DEFORMITY [None]
  - INJECTION SITE PAIN [None]
